FAERS Safety Report 21610907 (Version 1)
Quarter: 2022Q4

REPORT INFORMATION
  Report Type: Spontaneous
  Country: AU (occurrence: AU)
  Receive Date: 20221117
  Receipt Date: 20221117
  Transmission Date: 20230113
  Serious: Yes (Other)
  Sender: FDA-Public Use
  Company Number: None

PATIENT

DRUGS (3)
  1. IBUPROFEN [Suspect]
     Active Substance: IBUPROFEN
     Indication: Patent ductus arteriosus
     Route: 065
  2. AMIKACIN SULFATE [Suspect]
     Active Substance: AMIKACIN SULFATE
     Indication: Evidence based treatment
     Route: 042
  3. VANCOMYCIN [Suspect]
     Active Substance: VANCOMYCIN
     Indication: Evidence based treatment
     Route: 042

REACTIONS (7)
  - Condition aggravated [Recovered/Resolved]
  - Erythema [Recovered/Resolved]
  - Leukocytosis [Recovered/Resolved]
  - Mass [Recovered/Resolved]
  - Skin lesion [Recovered/Resolved]
  - Swelling face [Recovered/Resolved]
  - Drug ineffective [Unknown]
